FAERS Safety Report 5670935-0 (Version None)
Quarter: 2008Q1

REPORT INFORMATION
  Report Type: 
  Country: None (occurrence: None)
  Receive Date: 20080313
  Receipt Date: 20080219
  Transmission Date: 20080703
  Serious: Yes (Hospitalization)
  Sender: FDA-Public Use
  Company Number: 2008015260

PATIENT
  Age: 45 Year
  Sex: Female
  Weight: 43.0917 kg

DRUGS (11)
  1. SU-011, 248 (SUNITINIB MALATE) [Suspect]
     Indication: BREAST CANCER
     Dosage: 37.5 MG (37.5 MG,1 IN 1 D),ORAL
     Route: 048
     Dates: start: 20071031
  2. PACLITAXEL [Suspect]
     Indication: BREAST CANCER
     Dosage: 130 MG/M2 (130 MG/M2, FRECUENCY: QWK; INTERVAL:  WEEKS X3), INTRAVENOUS
     Route: 042
     Dates: start: 20071031
  3. MS CONTIN [Concomitant]
  4. COMPAZINE (PROCHLORPERAZINE EDISYLATE) [Concomitant]
  5. PROTONIX [Concomitant]
  6. POTASSIUM (POTASSIUM) [Concomitant]
  7. BACTRIM DS [Concomitant]
  8. LORTAB [Concomitant]
  9. PREDNISOLONE [Concomitant]
  10. DIPHENHYDRAMINE HCL [Concomitant]
  11. LOVENOX [Concomitant]

REACTIONS (7)
  - BRONCHITIS [None]
  - CHEST PAIN [None]
  - DEEP VEIN THROMBOSIS [None]
  - DIARRHOEA [None]
  - DYSPNOEA [None]
  - GASTRIC ULCER [None]
  - NAUSEA [None]
